FAERS Safety Report 10934487 (Version 5)
Quarter: 2018Q2

REPORT INFORMATION
  Report Type: Spontaneous
  Country: US (occurrence: US)
  Receive Date: 20150320
  Receipt Date: 20180509
  Transmission Date: 20180711
  Serious: No
  Sender: FDA-Public Use
  Company Number: US-PFIZER INC-2015096181

PATIENT
  Age: 53 Year
  Sex: Female
  Weight: 68 kg

DRUGS (5)
  1. MOTRIN [Suspect]
     Active Substance: IBUPROFEN
     Indication: PAIN
     Dosage: 800 MG, 3X/DAY
     Route: 048
  2. ULTRAM [Concomitant]
     Active Substance: TRAMADOL HYDROCHLORIDE
     Indication: PAIN
     Dosage: 50 MG Q 8 HRS PRN
  3. NORCO [Concomitant]
     Active Substance: ACETAMINOPHEN\HYDROCODONE BITARTRATE
     Indication: PAIN
     Dosage: 10 Q 6 HRS AS NEEDED
  4. LYRICA [Concomitant]
     Active Substance: PREGABALIN
     Indication: PAIN
     Dosage: 200 MG, 2X/DAY
  5. NEURONTIN [Suspect]
     Active Substance: GABAPENTIN
     Indication: PAIN
     Dosage: 300 MG, 2X/DAY
     Route: 048

REACTIONS (5)
  - Drug hypersensitivity [Unknown]
  - Feeling drunk [Recovered/Resolved]
  - Diarrhoea [Recovered/Resolved]
  - Back pain [Unknown]
  - Gait inability [Unknown]
